FAERS Safety Report 16851001 (Version 1)
Quarter: 2019Q3

REPORT INFORMATION
  Report Type: Spontaneous
  Country: CN (occurrence: CN)
  Receive Date: 20190925
  Receipt Date: 20190925
  Transmission Date: 20191005
  Serious: Yes (Death, Hospitalization, Other)
  Sender: FDA-Public Use
  Company Number: CN-SA-2019SA262741

PATIENT
  Age: 21 Year
  Sex: Male

DRUGS (4)
  1. CAPECITABINE. [Suspect]
     Active Substance: CAPECITABINE
     Indication: ADENOCARCINOMA
     Dosage: 1000 MG/M2, BID
     Route: 048
     Dates: start: 20161118
  2. OXALIPLATIN. [Suspect]
     Active Substance: OXALIPLATIN
     Indication: ADENOCARCINOMA
     Dosage: 130 MG/M2 ON DAY 1, QCY
     Route: 042
     Dates: start: 20161118
  3. CETUXIMAB. [Suspect]
     Active Substance: CETUXIMAB
     Indication: ADENOCARCINOMA
     Dosage: 500 MG/M2 OVER 2 H ON DAY 1 EVERY 2 WEEKS
     Route: 042
     Dates: start: 20161118
  4. IRINOTECAN [Suspect]
     Active Substance: IRINOTECAN
     Indication: ADENOCARCINOMA
     Dosage: 180 MG/M2 IV OVER 30-90 MIN ON DAY 1

REACTIONS (9)
  - Hypokalaemia [Unknown]
  - Disease progression [Fatal]
  - Ascites [Unknown]
  - Upper respiratory tract infection [Unknown]
  - Hypocalcaemia [Unknown]
  - General physical health deterioration [Unknown]
  - Rash [Unknown]
  - Abdominal pain upper [Unknown]
  - Infection [Unknown]
